FAERS Safety Report 16479842 (Version 1)
Quarter: 2019Q2

REPORT INFORMATION
  Report Type: Spontaneous
  Country: US (occurrence: US)
  Receive Date: 20190626
  Receipt Date: 20190626
  Transmission Date: 20190711
  Serious: Yes (Hospitalization)
  Sender: FDA-Public Use
  Company Number: US-HONG KONG KING-FRIEND INDUSTRIAL COMPANY-2019NKF00008

PATIENT

DRUGS (3)
  1. PHOTOFRIN [Concomitant]
     Active Substance: PORFIMER SODIUM
     Indication: PANCREATIC CARCINOMA
     Dosage: 1-2 MG/KG
     Route: 042
  2. NAB-PACLITAXEL [Concomitant]
     Active Substance: PACLITAXEL
     Indication: PANCREATIC CARCINOMA
     Dosage: 125 MG/M2 (OVER 30 MINUTES) ON DAY 1, 8 AND 15
     Route: 042
  3. GEMCITABINE [Suspect]
     Active Substance: GEMCITABINE\GEMCITABINE HYDROCHLORIDE
     Indication: PANCREATIC CARCINOMA
     Dosage: 125 MG/M2 (OVER 30 MINUTES), DAYS 1, 8, AND 15
     Route: 042

REACTIONS (2)
  - Ascites [Recovered/Resolved]
  - Nausea [Recovered/Resolved]
